FAERS Safety Report 22343617 (Version 4)
Quarter: 2023Q2

REPORT INFORMATION
  Report Type: Report from Study
  Country: CN (occurrence: None)
  Receive Date: 20230519
  Receipt Date: 20230531
  Transmission Date: 20230722
  Serious: Yes (Death, Hospitalization)
  Sender: FDA-Public Use
  Company Number: CN-ROCHE-3334770

PATIENT
  Age: 59 Year
  Sex: Male
  Weight: 81 kg

DRUGS (6)
  1. MOSUNETUZUMAB [Suspect]
     Active Substance: MOSUNETUZUMAB
     Indication: Follicular lymphoma
     Dosage: DATE OF MOST RECENT DOSE OF STUDY DRUG PRIOR TO SAE: 29/MAR/2023 AT 2:26 PM
     Route: 058
     Dates: start: 20221026
  2. LENALIDOMIDE [Suspect]
     Active Substance: LENALIDOMIDE
     Indication: Follicular lymphoma
     Dosage: DATE OF MOST RECENT DOSE OF STUDY DRUG PRIOR TO SAE: 16/APR/2023 AT 3:30 PM
     Route: 048
     Dates: start: 20221116
  3. INSULIN LISPRO [Concomitant]
     Active Substance: INSULIN LISPRO
     Indication: Diabetes mellitus
     Route: 058
     Dates: start: 20230310
  4. DEXAMETHASONE SODIUM PHOSPHATE [Concomitant]
     Active Substance: DEXAMETHASONE SODIUM PHOSPHATE
     Route: 042
     Dates: start: 20230329, end: 20230329
  5. CIMETIDINE [Concomitant]
     Active Substance: CIMETIDINE
     Route: 048
     Dates: start: 20230329, end: 20230329
  6. INDOMETHACIN [Concomitant]
     Active Substance: INDOMETHACIN
     Route: 058
     Dates: start: 20230329, end: 20230330

REACTIONS (4)
  - COVID-19 pneumonia [Fatal]
  - Sepsis [Recovered/Resolved]
  - Platelet count decreased [Not Recovered/Not Resolved]
  - Fungal infection [Not Recovered/Not Resolved]

NARRATIVE: CASE EVENT DATE: 20230417
